FAERS Safety Report 6529340-7 (Version None)
Quarter: 2010Q1

REPORT INFORMATION
  Report Type: 
  Country: None (occurrence: None)
  Receive Date: 20100107
  Receipt Date: 20100104
  Transmission Date: 20100710
  Serious: Yes (Other)
  Sender: FDA-Public Use
  Company Number: US-BAYER-US-2006-020561

PATIENT
  Age: 49 Year
  Sex: Female
  Weight: 84 kg

DRUGS (24)
  1. CLIMARA [Suspect]
     Indication: OSTEOPOROSIS
     Dosage: .625 MG/D, CONT
     Route: 062
     Dates: start: 19970701, end: 19971201
  2. PROVERA [Suspect]
     Indication: OSTEOPOROSIS
     Dosage: 5 MG, UNK
     Dates: start: 19970701, end: 19971201
  3. PREMPRO [Suspect]
     Indication: OSTEOPOROSIS
     Dosage: 0.625/5 MG, UNK
     Dates: start: 19971201, end: 20020801
  4. NAPROXEN [Concomitant]
     Dosage: UNK, UNK
     Dates: start: 19990911
  5. NORVASC [Concomitant]
     Dosage: UNK, UNK
     Dates: start: 20040714
  6. LORAZEPAM [Concomitant]
     Dosage: .5 MG, UNK
     Dates: start: 20070714
  7. LIDOCAINE HCL VISCOUS [Concomitant]
     Dosage: 2 %, UNK
     Dates: start: 20030201
  8. PREDNISONE [Concomitant]
     Dosage: 10 MG, UNK
     Dates: start: 20030411
  9. CLEOCIN [Concomitant]
     Dosage: 2 %, UNK
     Dates: start: 19991229
  10. METHOCARBAMOL [Concomitant]
     Dosage: 500 MG, UNK
     Dates: start: 20030520
  11. LOPROX [Concomitant]
     Dosage: .77 %, UNK
     Route: 061
     Dates: start: 20030708
  12. TRIAMCINOLONE [Concomitant]
     Dosage: .1 %, UNK
     Route: 061
     Dates: start: 20030708
  13. ECONAZOLE NITRATE [Concomitant]
     Dosage: 1 %, UNK
     Route: 061
     Dates: start: 20040501
  14. NYSTOP [Concomitant]
     Dosage: 100,000 U/GM POWDER
     Dates: start: 20040501
  15. INDOMETHACIN [Concomitant]
     Dosage: 50 MG, UNK
     Dates: start: 20040515
  16. HYDROMET [Concomitant]
     Dosage: UNK, UNK
     Dates: start: 20000315
  17. CLARITIN [Concomitant]
     Dosage: 10 MG, UNK
     Dates: start: 19990927
  18. ENTEX SOLUTION [Concomitant]
     Dosage: UNK TAB(S), UNK
     Dates: start: 20000315
  19. AMOXICILLIN [Concomitant]
     Dosage: 500 MG, UNK
     Dates: start: 20000315
  20. TERAZOL 7 [Concomitant]
     Dosage: UNK, UNK
     Dates: start: 20000908
  21. BIAXIN [Concomitant]
     Dosage: 500 MG, UNK
     Dates: start: 20010203
  22. FENESIN TABLET [Concomitant]
     Dosage: 600 MG, UNK
     Dates: start: 20010203
  23. ALBUTEROL [Concomitant]
     Dosage: 90 ?G, UNK
     Route: 055
     Dates: start: 20010203
  24. SCOP [Concomitant]
     Dosage: 1.5 MG/72 HR
     Route: 062
     Dates: start: 20020731

REACTIONS (2)
  - BREAST CANCER [None]
  - CELLULITIS [None]
